FAERS Safety Report 10057150 (Version 1)
Quarter: 2014Q2

REPORT INFORMATION
  Report Type: Spontaneous
  Country: US (occurrence: US)
  Receive Date: 20140403
  Receipt Date: 20140403
  Transmission Date: 20141212
  Serious: Yes (Other)
  Sender: FDA-Public Use
  Company Number: US-ABBVIE-14P-163-1217755-00

PATIENT
  Age: 59 Year
  Sex: Female
  Weight: 59.02 kg

DRUGS (1)
  1. DEPAKOTE ER [Suspect]
     Indication: CONVULSION
     Dates: start: 2008

REACTIONS (14)
  - Brain neoplasm [Recovered/Resolved]
  - Ill-defined disorder [Recovered/Resolved]
  - Hydrocephalus [Recovered/Resolved]
  - Asthenia [Recovered/Resolved]
  - Nausea [Recovered/Resolved]
  - Hyponatraemia [Not Recovered/Not Resolved]
  - Muscular weakness [Not Recovered/Not Resolved]
  - Gastric polyps [Unknown]
  - Nausea [Not Recovered/Not Resolved]
  - Dizziness [Not Recovered/Not Resolved]
  - Bone pain [Not Recovered/Not Resolved]
  - Ear pain [Not Recovered/Not Resolved]
  - Weight increased [Not Recovered/Not Resolved]
  - Abdominal pain [Not Recovered/Not Resolved]
